FAERS Safety Report 5421532-3 (Version None)
Quarter: 2007Q3

REPORT INFORMATION
  Report Type: 
  Country: None (occurrence: None)
  Receive Date: 20070821
  Receipt Date: 20070809
  Transmission Date: 20080115
  Serious: Yes (Other)
  Sender: FDA-Public Use
  Company Number: CA-PFIZER INC-2007016549

PATIENT
  Age: 46 Year
  Sex: Female

DRUGS (2)
  1. LYRICA [Suspect]
     Indication: PAIN
     Route: 048
  2. AMITRIPTYLINE HCL [Concomitant]

REACTIONS (3)
  - NERVE INJURY [None]
  - VISUAL DISTURBANCE [None]
  - VISUAL FIELD DEFECT [None]
